FAERS Safety Report 25506081 (Version 1)
Quarter: 2025Q3

REPORT INFORMATION
  Report Type: Spontaneous
  Country: US (occurrence: US)
  Receive Date: 20250702
  Receipt Date: 20250702
  Transmission Date: 20251021
  Serious: Yes (Other)
  Sender: RADIUS PHARM
  Company Number: US-RADIUS HEALTH INC.-2025US002405

PATIENT
  Sex: Female

DRUGS (1)
  1. TYMLOS [Suspect]
     Active Substance: ABALOPARATIDE
     Indication: Senile osteoporosis
     Dosage: 80 MICROGRAM, QD
     Route: 058

REACTIONS (7)
  - Surgery [Unknown]
  - Infection [Unknown]
  - Urinary tract infection [Unknown]
  - Product dose omission issue [Recovered/Resolved]
  - Orthostatic hypotension [Unknown]
  - Heart rate increased [Unknown]
  - Product dose omission issue [Unknown]
